FAERS Safety Report 8562562 (Version 3)
Quarter: 2013Q2

REPORT INFORMATION
  Report Type: Spontaneous
  Country: DE (occurrence: DE)
  Receive Date: 20120515
  Receipt Date: 20130506
  Transmission Date: 20140414
  Serious: Yes (Hospitalization, Disabling)
  Sender: FDA-Public Use
  Company Number: PHHY2012DE039754

PATIENT
  Sex: Male
  Weight: 51 kg

DRUGS (5)
  1. AFINITOR [Suspect]
     Indication: METASTATIC RENAL CELL CARCINOMA
     Dosage: 10 MG PER DAY
     Route: 048
     Dates: start: 201011, end: 201103
  2. AFINITOR [Suspect]
     Dosage: 10 MG, PER DAY WITH INTERRUPTION EVERY THIRD DAY
     Dates: start: 201104
  3. ZOMETA [Suspect]
     Indication: METASTASES TO BONE
     Dosage: 4 MG, EVERY 4 WEEKS
     Route: 042
     Dates: start: 200711, end: 201006
  4. NOVALGIN [Concomitant]
  5. PANTOPRAZOLE [Concomitant]
     Dosage: 40 MG, DAILY

REACTIONS (6)
  - Osteonecrosis of jaw [Recovering/Resolving]
  - Pain [Unknown]
  - Erythema [Unknown]
  - Swelling [Unknown]
  - Exposed bone in jaw [Unknown]
  - Mucosal inflammation [Recovering/Resolving]
